FAERS Safety Report 9457545 (Version 1)
Quarter: 2013Q3

REPORT INFORMATION
  Report Type: Spontaneous
  Country: IT (occurrence: IT)
  Receive Date: 20130814
  Receipt Date: 20130814
  Transmission Date: 20140515
  Serious: Yes (Hospitalization)
  Sender: FDA-Public Use
  Company Number: IT-RANBAXY-2013RR-72137

PATIENT
  Age: 41 Year
  Sex: Female

DRUGS (2)
  1. RANITIDINE [Suspect]
     Indication: PRODUCT USED FOR UNKNOWN INDICATION
     Dosage: 1 DF/DAY
     Route: 048
     Dates: start: 20130711, end: 20130711
  2. XANAX [Concomitant]
     Indication: PRODUCT USED FOR UNKNOWN INDICATION
     Dosage: UNK
     Route: 065

REACTIONS (2)
  - Tongue oedema [Recovering/Resolving]
  - Paraesthesia oral [Recovering/Resolving]
